FAERS Safety Report 10007059 (Version 3)
Quarter: 2014Q3

REPORT INFORMATION
  Report Type: Spontaneous
  Country: US (occurrence: None)
  Receive Date: 20140311
  Receipt Date: 20140714
  Transmission Date: 20150326
  Serious: Yes (Other)
  Sender: FDA-Public Use
  Company Number: 2014US003050

PATIENT
  Age: 29 Year
  Sex: Female
  Weight: 73.8 kg

DRUGS (7)
  1. TRAMADOL (TRAMADOL HYDROCHLORIDE) [Concomitant]
     Active Substance: TRAMADOL HYDROCHLORIDE
  2. AMBIEN [Concomitant]
     Active Substance: ZOLPIDEM TARTRATE
  3. ICLUSIG [Suspect]
     Active Substance: PONATINIB
     Indication: CHRONIC MYELOID LEUKAEMIA
     Route: 048
     Dates: start: 20140131, end: 20140205
  4. ZOFRAN (ONDANSETRON HYDROCHLORIDE) [Concomitant]
  5. ASPIRIN (ACETYLSALICYLIC ACID) [Concomitant]
     Active Substance: ASPIRIN
  6. LORCET (HYDROCODONE BITARTRATE, PARACETAMOL) [Concomitant]
  7. TRAZODONE [Concomitant]
     Active Substance: TRAZODONE HYDROCHLORIDE

REACTIONS (3)
  - Off label use [None]
  - Thrombophlebitis superficial [None]
  - Thrombosis [None]

NARRATIVE: CASE EVENT DATE: 20140207
